FAERS Safety Report 10941313 (Version 2)
Quarter: 2015Q2

REPORT INFORMATION
  Report Type: Spontaneous
  Country: US (occurrence: US)
  Receive Date: 20150322
  Receipt Date: 20150524
  Transmission Date: 20150821
  Serious: No
  Sender: FDA-Public Use
  Company Number: US-JNJFOC-20140907250

PATIENT
  Age: 64 Year
  Sex: Female
  Weight: 95.26 kg

DRUGS (15)
  1. LANTUS [Concomitant]
     Active Substance: INSULIN GLARGINE
     Indication: DIABETES MELLITUS MANAGEMENT
     Dosage: 20 UG IN AM AND 10 UG IN PM
     Route: 058
     Dates: start: 2004
  2. HUMALOG [Concomitant]
     Active Substance: INSULIN LISPRO
     Indication: DIABETES MELLITUS MANAGEMENT
     Dosage: 2-8 U AS NEEDED
     Route: 058
     Dates: start: 2006
  3. LYRICA [Concomitant]
     Active Substance: PREGABALIN
     Indication: PAIN
     Route: 048
     Dates: start: 2011
  4. CLONIDINE. [Concomitant]
     Active Substance: CLONIDINE
     Indication: HYPERTENSION
     Route: 048
     Dates: start: 2011
  5. ESTRADIOL. [Concomitant]
     Active Substance: ESTRADIOL
     Indication: HORMONE REPLACEMENT THERAPY
     Route: 048
     Dates: start: 2012
  6. INVOKANA [Suspect]
     Active Substance: CANAGLIFLOZIN
     Indication: TYPE 1 DIABETES MELLITUS
     Route: 048
     Dates: start: 20140904
  7. ATENOLOL. [Concomitant]
     Active Substance: ATENOLOL
     Indication: HYPERTENSION
     Route: 048
     Dates: start: 2012
  8. DEPLIN [Concomitant]
     Active Substance: LEVOMEFOLATE CALCIUM
     Indication: DEPRESSION
     Route: 048
     Dates: start: 201408
  9. METFORMIN [Concomitant]
     Active Substance: METFORMIN HYDROCHLORIDE
     Indication: DIABETES MELLITUS MANAGEMENT
     Route: 048
     Dates: start: 2011
  10. VALTREX [Concomitant]
     Active Substance: VALACYCLOVIR HYDROCHLORIDE
     Indication: ORAL HERPES
     Route: 048
     Dates: start: 2010
  11. LEXAPRO [Concomitant]
     Active Substance: ESCITALOPRAM OXALATE
     Indication: DEPRESSION
     Route: 048
     Dates: start: 2013
  12. MICARDIS [Concomitant]
     Active Substance: TELMISARTAN
     Indication: HYPERTENSION
     Route: 048
     Dates: start: 2012
  13. BUPROPION [Concomitant]
     Active Substance: BUPROPION
     Indication: DEPRESSION
     Route: 048
     Dates: start: 2013
  14. ACTOS [Concomitant]
     Active Substance: PIOGLITAZONE HYDROCHLORIDE
     Indication: DIABETES MELLITUS MANAGEMENT
     Route: 048
     Dates: start: 2011
  15. SINGULAIR [Concomitant]
     Active Substance: MONTELUKAST SODIUM
     Indication: MULTIPLE ALLERGIES
     Route: 048
     Dates: start: 2011

REACTIONS (3)
  - Drug prescribing error [Unknown]
  - Wrong technique in drug usage process [Unknown]
  - Product use issue [Unknown]

NARRATIVE: CASE EVENT DATE: 20140904
